FAERS Safety Report 6705647 (Version 23)
Quarter: 2014Q2

REPORT INFORMATION
  Report Type: Spontaneous
  Country: US (occurrence: US)
  Receive Date: 20080722
  Receipt Date: 20140627
  Transmission Date: 20141212
  Serious: Yes (Death, Hospitalization, Other)
  Sender: FDA-Public Use
  Company Number: PHEH2008US06171

PATIENT
  Age: 62 Year
  Sex: Male
  Weight: 104.31 kg

DRUGS (40)
  1. ZOMETA [Suspect]
     Dates: end: 20081119
  2. RADIATION THERAPY [Concomitant]
     Dates: start: 20081115
  3. CHEMOTHERAPEUTICS NOS [Concomitant]
  4. SYNTHROID [Concomitant]
  5. KETOCONAZOLE [Concomitant]
  6. PROTONIX ^PHARMACIA^ [Concomitant]
  7. FLOMAX ^BOEHRINGER INGELHEIM^ [Concomitant]
  8. KLOR-CON [Concomitant]
  9. PERIDEX [Concomitant]
  10. LORTAB ELIXIR [Concomitant]
  11. HYDROCODONE [Concomitant]
  12. NAPROXEN [Concomitant]
  13. CLINDAMYCIN [Concomitant]
     Dosage: 300 MG, UNK
  14. CHLORHEXIDINE [Concomitant]
  15. DEXAMETHASONE [Concomitant]
  16. NAVELBINE ^ASTA MEDICA^ [Concomitant]
  17. DECADRON                                /CAN/ [Concomitant]
  18. HYDROCORTISONE [Concomitant]
  19. CELEBREX [Concomitant]
  20. LUPRON [Concomitant]
  21. LEXAPRO [Concomitant]
  22. PREVACID [Concomitant]
  23. LASIX [Concomitant]
  24. COREG [Concomitant]
  25. METOPROLOL [Concomitant]
  26. PREDNISONE [Concomitant]
  27. ALPHAGAN [Concomitant]
  28. ALBUTEROL [Concomitant]
  29. SINGULAIR [Concomitant]
  30. POTASSIUM CHLORIDE [Concomitant]
  31. FUROSEMIDE [Concomitant]
  32. LISINOPRIL [Concomitant]
  33. DIGOXIN [Concomitant]
  34. FLUCONAZOLE [Concomitant]
  35. EMCYT [Concomitant]
  36. RISPERIDONE [Concomitant]
  37. TAXOL [Concomitant]
  38. OXYCODONE [Concomitant]
  39. DILAUDID [Concomitant]
  40. CASODEX [Concomitant]

REACTIONS (95)
  - Death [Fatal]
  - Spinal cord compression [Unknown]
  - Back pain [Unknown]
  - Failure to thrive [Unknown]
  - Cardiac failure congestive [Unknown]
  - Chronic obstructive pulmonary disease [Unknown]
  - Emphysema [Unknown]
  - Atrial fibrillation [Unknown]
  - Metastases to lung [Unknown]
  - Metastases to bone [Unknown]
  - Prostatic specific antigen increased [Unknown]
  - Osteonecrosis of jaw [Unknown]
  - Pain [Unknown]
  - Infection [Unknown]
  - Deformity [Unknown]
  - Emotional distress [Unknown]
  - Anxiety [Unknown]
  - Purulent discharge [Unknown]
  - Tooth fracture [Unknown]
  - Dental caries [Unknown]
  - Physical disability [Unknown]
  - Renal failure [Unknown]
  - Meniscus injury [Unknown]
  - Anaemia [Unknown]
  - Dyskinesia [Unknown]
  - Gait disturbance [Unknown]
  - Dysphagia [Unknown]
  - Bone pain [Unknown]
  - Fall [Unknown]
  - Laceration [Unknown]
  - Orthosis user [Unknown]
  - Chondromalacia [Unknown]
  - Patellofemoral pain syndrome [Unknown]
  - Hiatus hernia [Unknown]
  - Barrett^s oesophagus [Unknown]
  - Diverticulum [Unknown]
  - Haemorrhoids [Unknown]
  - Gastritis [Unknown]
  - Large intestine polyp [Unknown]
  - Extradural neoplasm [Unknown]
  - Humerus fracture [Unknown]
  - Primary sequestrum [Unknown]
  - Tooth loss [Unknown]
  - Osteoradionecrosis [Unknown]
  - Osteomyelitis acute [Unknown]
  - Diabetes mellitus [Unknown]
  - Oral pain [Unknown]
  - Pain in jaw [Unknown]
  - Sinus disorder [Unknown]
  - Osteolysis [Unknown]
  - Exposed bone in jaw [Unknown]
  - Hypoaesthesia [Unknown]
  - Bone lesion [Unknown]
  - Nasal septum deviation [Unknown]
  - Oedema mouth [Unknown]
  - Sensitivity of teeth [Unknown]
  - Lymphadenopathy [Recovering/Resolving]
  - Diarrhoea [Unknown]
  - Rheumatic disorder [Unknown]
  - Hypotension [Unknown]
  - Dyspnoea [Unknown]
  - Face injury [Unknown]
  - Neck injury [Unknown]
  - Joint swelling [Unknown]
  - Pleural fibrosis [Unknown]
  - Rib fracture [Unknown]
  - Suicidal ideation [Unknown]
  - Osteopenia [Unknown]
  - Bone fragmentation [Unknown]
  - Neuralgia [Unknown]
  - Insomnia [Unknown]
  - Oral disorder [Unknown]
  - Vomiting [Unknown]
  - Fatigue [Unknown]
  - Lethargy [Unknown]
  - Abdominal pain upper [Unknown]
  - Prostatic calcification [Unknown]
  - Pulmonary mass [Unknown]
  - Atelectasis [Unknown]
  - Metaplasia [Unknown]
  - Pulmonary calcification [Unknown]
  - Swelling [Unknown]
  - Muscle oedema [Unknown]
  - Hand fracture [Unknown]
  - Osteoarthritis [Unknown]
  - Bullous lung disease [Unknown]
  - Aortic calcification [Unknown]
  - Periodontal disease [Unknown]
  - Tooth erosion [Unknown]
  - Rib deformity [Unknown]
  - Osteosclerosis [Unknown]
  - Intervertebral disc space narrowing [Unknown]
  - Scoliosis [Unknown]
  - Spinal osteoarthritis [Unknown]
  - Local swelling [Unknown]
